FAERS Safety Report 21791802 (Version 1)
Quarter: 2022Q4

REPORT INFORMATION
  Report Type: Spontaneous
  Country: HR (occurrence: HR)
  Receive Date: 20221229
  Receipt Date: 20221229
  Transmission Date: 20230112
  Serious: Yes (Other)
  Sender: FDA-Public Use
  Company Number: HR-BRISTOL-MYERS SQUIBB COMPANY-2022-154626

PATIENT
  Age: 82 Year
  Sex: Male

DRUGS (6)
  1. NEBIVOLOL [Suspect]
     Active Substance: NEBIVOLOL
     Indication: Product used for unknown indication
     Dosage: 5MG (INTRODUCTION OF NEBIVOLOL 5 MG 1X ? TBL WITH AN UPTITRATION PLAN WITH PULSE MONITORING )
     Route: 065
  2. ATORVASTATIN [Suspect]
     Active Substance: ATORVASTATIN
     Indication: Product used for unknown indication
     Dosage: 20 MG, QD (INTRODUCTION OF ATORVASTATIN 20 MG 1X1 TBL WITH UPTITRATION PLAN)
     Route: 065
  3. PERINDOPRIL [Suspect]
     Active Substance: PERINDOPRIL
     Indication: Product used for unknown indication
     Dosage: 5 MG, QD
     Route: 065
  4. PANTOPRAZOLE [Suspect]
     Active Substance: PANTOPRAZOLE
     Indication: Product used for unknown indication
     Dosage: 40 MG,QD (40 MG 2X1 TABLET FOR A WEEK, THEN 1X1 TABLET)
     Route: 065
  5. ELIQUIS [Suspect]
     Active Substance: APIXABAN
     Indication: Product used for unknown indication
     Dosage: 5 MG (0.5 UNITS/DAY)
     Route: 065
  6. TRIMETAZIDINE [Suspect]
     Active Substance: TRIMETAZIDINE
     Indication: Product used for unknown indication
     Dosage: 35 MG (0.5 UNIT/DAY)
     Route: 065

REACTIONS (1)
  - Atrial fibrillation [Unknown]
